FAERS Safety Report 7105060-5 (Version None)
Quarter: 2010Q4

REPORT INFORMATION
  Report Type: 
  Country: None (occurrence: None)
  Receive Date: 20101116
  Receipt Date: 20101105
  Transmission Date: 20110411
  Serious: Yes (Hospitalization)
  Sender: FDA-Public Use
  Company Number: US-BAXTER-2010BH027530

PATIENT
  Age: 55 Year
  Sex: Male
  Weight: 107 kg

DRUGS (13)
  1. GAMMAGARD LIQUID [Suspect]
     Indication: DEMENTIA ALZHEIMER'S TYPE
     Route: 042
     Dates: start: 20101026, end: 20101026
  2. BLINDED THERAPY [Suspect]
     Route: 042
     Dates: start: 20101012, end: 20101012
  3. BLINDED THERAPY [Suspect]
     Route: 042
     Dates: start: 20100928, end: 20100928
  4. FOLIC ACID W/VITAMIN B12 [Concomitant]
     Route: 048
     Dates: start: 20080401
  5. ACETYLCYSTEINE [Concomitant]
     Route: 048
     Dates: start: 20080401
  6. ARICEPT [Concomitant]
     Route: 048
     Dates: start: 20081001
  7. NAMENDA [Concomitant]
     Route: 048
     Dates: start: 20080401
  8. CELEXA [Concomitant]
     Route: 048
     Dates: start: 20090201
  9. PANTOPRAZOLE [Concomitant]
     Route: 048
     Dates: start: 20010101
  10. MULTI-VITAMINS [Concomitant]
     Route: 048
     Dates: start: 20000101
  11. ASCORBIC ACID [Concomitant]
     Route: 048
     Dates: start: 20000101
  12. SYNTHROID [Concomitant]
     Route: 048
     Dates: start: 20100212
  13. CLARITIN [Concomitant]
     Route: 048
     Dates: start: 20100901

REACTIONS (1)
  - DEEP VEIN THROMBOSIS [None]
